FAERS Safety Report 8003195-6 (Version None)
Quarter: 2011Q4

REPORT INFORMATION
  Report Type: 
  Country: None (occurrence: None)
  Receive Date: 20111222
  Receipt Date: 20111215
  Transmission Date: 20120403
  Serious: No
  Sender: FDA-Public Use
  Company Number: PHEH2011US011306

PATIENT
  Sex: Female

DRUGS (2)
  1. VARIVAX [Suspect]
     Indication: VARICELLA
     Dosage: UNK UKN, UNK
     Dates: start: 20111027
  2. GILENYA [Suspect]
     Indication: RELAPSING-REMITTING MULTIPLE SCLEROSIS
     Dosage: 0.5 MG, QD
     Route: 048
     Dates: start: 20110425, end: 20110718

REACTIONS (1)
  - PERTUSSIS [None]
